FAERS Safety Report 19866481 (Version 2)
Quarter: 2021Q3

REPORT INFORMATION
  Report Type: Spontaneous
  Country: US (occurrence: US)
  Receive Date: 20210921
  Receipt Date: 20210924
  Transmission Date: 20211014
  Serious: Yes (Death, Life-Threatening, Hospitalization)
  Sender: FDA-Public Use
  Company Number: US-DSJP-DSU-2021-130693

PATIENT
  Age: 43 Year
  Sex: Male

DRUGS (1)
  1. ENHERTU [Suspect]
     Active Substance: FAM-TRASTUZUMAB DERUXTECAN-NXKI
     Indication: COLORECTAL CANCER
     Dosage: UNK (THREE TOTAL DOSES)
     Route: 042

REACTIONS (5)
  - Interstitial lung disease [Fatal]
  - Pneumonitis [Fatal]
  - Off label use [Not Recovered/Not Resolved]
  - Pneumomediastinum [Fatal]
  - Pneumonia [Unknown]

NARRATIVE: CASE EVENT DATE: 2021
